FAERS Safety Report 20061965 (Version 1)
Quarter: 2021Q4

REPORT INFORMATION
  Report Type: Spontaneous
  Country: US (occurrence: None)
  Receive Date: 20211111
  Receipt Date: 20211111
  Transmission Date: 20220303
  Serious: Yes (Hospitalization, Disabling)
  Sender: FDA-Public Use
  Company Number: None

PATIENT
  Age: 48 Year
  Sex: Female
  Weight: 77.4 kg

DRUGS (4)
  1. BOTOX [Suspect]
     Active Substance: ONABOTULINUMTOXINA
     Indication: Migraine
     Dosage: FREQUENCY : ONCE;?OTHER ROUTE : INJECTED IN VARIOUS LOCATIONS;?
     Route: 050
     Dates: start: 20211013
  2. BENTYL [Concomitant]
     Active Substance: DICYCLOMINE HYDROCHLORIDE
  3. ZOFRAN [Concomitant]
     Active Substance: ONDANSETRON HYDROCHLORIDE
  4. PRILOSEC [Concomitant]
     Active Substance: OMEPRAZOLE MAGNESIUM

REACTIONS (12)
  - Migraine [None]
  - Gastrointestinal pain [None]
  - Diarrhoea [None]
  - Nausea [None]
  - Gastrointestinal disorder [None]
  - Muscle spasms [None]
  - Facial spasm [None]
  - Anxiety [None]
  - Flushing [None]
  - Hyperhidrosis [None]
  - Impaired work ability [None]
  - Loss of personal independence in daily activities [None]

NARRATIVE: CASE EVENT DATE: 20211013
